FAERS Safety Report 21760741 (Version 1)
Quarter: 2022Q4

REPORT INFORMATION
  Report Type: Spontaneous
  Country: US (occurrence: US)
  Receive Date: 20221221
  Receipt Date: 20221221
  Transmission Date: 20230113
  Serious: No
  Sender: FDA-Public Use
  Company Number: US-INCYTE CORPORATION-2022IN012061

PATIENT

DRUGS (4)
  1. JAKAFI [Suspect]
     Active Substance: RUXOLITINIB
     Dosage: 20 MILLIGRAM, BID
     Route: 065
  2. MOUNJARO [Concomitant]
     Active Substance: TIRZEPATIDE
     Indication: Glycosylated haemoglobin abnormal
     Route: 065
  3. MOUNJARO [Concomitant]
     Active Substance: TIRZEPATIDE
     Indication: Blood glucose abnormal
  4. MOUNJARO [Concomitant]
     Active Substance: TIRZEPATIDE
     Indication: Weight abnormal

REACTIONS (2)
  - Fear [Unknown]
  - Fear of weight gain [Unknown]
